FAERS Safety Report 20062149 (Version 1)
Quarter: 2021Q4

REPORT INFORMATION
  Report Type: Spontaneous
  Country: SE (occurrence: SE)
  Receive Date: 20211112
  Receipt Date: 20211112
  Transmission Date: 20220303
  Serious: Yes (Disabling, Other)
  Sender: FDA-Public Use
  Company Number: SE-SLATE RUN PHARMACEUTICALS-21SE000761

PATIENT

DRUGS (12)
  1. VANCOMYCIN HYDROCHLORIDE [Suspect]
     Active Substance: VANCOMYCIN HYDROCHLORIDE
     Indication: Streptococcal infection
     Dosage: 1.5 GRAM, QID
  2. VANCOMYCIN HYDROCHLORIDE [Suspect]
     Active Substance: VANCOMYCIN HYDROCHLORIDE
     Dosage: 2 GRAM, QID
  3. VANCOMYCIN HYDROCHLORIDE [Suspect]
     Active Substance: VANCOMYCIN HYDROCHLORIDE
     Dosage: 1.5 GRAM, TID
  4. MEROPENEM [Concomitant]
     Active Substance: MEROPENEM
     Indication: Meningitis
     Dosage: 2 GRAM, TID
  5. ACYCLOVIR [Concomitant]
     Active Substance: ACYCLOVIR
     Indication: Meningitis
     Dosage: 800 MILLIGRAM, TID
  6. BETAMETHASONE [Concomitant]
     Active Substance: BETAMETHASONE
     Indication: Meningitis
     Dosage: 8 MILLIGRAM, QID
  7. CEFTAZIDIME [Concomitant]
     Active Substance: CEFTAZIDIME
     Indication: Product used for unknown indication
     Route: 057
  8. DEXAMETHASONE [Concomitant]
     Active Substance: DEXAMETHASONE
     Indication: Product used for unknown indication
     Route: 047
  9. CYCLOPENTOLATE [Concomitant]
     Active Substance: CYCLOPENTOLATE
     Indication: Product used for unknown indication
     Route: 047
  10. SULFAMETHOXAZOLE\TRIMETHOPRIM [Concomitant]
     Active Substance: SULFAMETHOXAZOLE\TRIMETHOPRIM
     Indication: Toxoplasmosis prophylaxis
  11. RIFAMPIN [Concomitant]
     Active Substance: RIFAMPIN
     Indication: Toxoplasmosis prophylaxis
  12. IOHEXOL [Concomitant]
     Active Substance: IOHEXOL
     Indication: Drug clearance

REACTIONS (10)
  - Retinal detachment [Not Recovered/Not Resolved]
  - Endophthalmitis [Recovered/Resolved]
  - Renal function test abnormal [Recovered/Resolved]
  - Memory impairment [Not Recovered/Not Resolved]
  - Treatment failure [Recovered/Resolved]
  - Drug level below therapeutic [Recovered/Resolved]
  - Nightmare [Not Recovered/Not Resolved]
  - Aberrant motor behaviour [Not Recovered/Not Resolved]
  - Periodontitis [Recovered/Resolved]
  - Product administered at inappropriate site [Recovered/Resolved]
